FAERS Safety Report 24388399 (Version 2)
Quarter: 2024Q4

REPORT INFORMATION
  Report Type: Report from Study
  Country: US (occurrence: US)
  Receive Date: 20241002
  Receipt Date: 20241015
  Transmission Date: 20250114
  Serious: Yes (Hospitalization, Other)
  Sender: PFIZER
  Company Number: US-SEATTLE GENETICS-2018SGN02752

PATIENT
  Age: 60 Year
  Sex: Male

DRUGS (24)
  1. ADCETRIS [Suspect]
     Active Substance: BRENTUXIMAB VEDOTIN
     Indication: Hodgkin^s disease
     Dosage: 1.2 MG/KG, ON DAYS 1 AND 15 FOR A 28 DAY CYCLE
     Route: 042
     Dates: start: 20180921
  2. DOXORUBICIN HYDROCHLORIDE [Suspect]
     Active Substance: DOXORUBICIN HYDROCHLORIDE
     Indication: Hodgkin^s disease
     Dosage: 25 MG/M2, ON DAYS 1 AND 15 FOR A 28 DAY CYCLE
     Route: 042
     Dates: start: 20180921
  3. DACARBAZINE [Suspect]
     Active Substance: DACARBAZINE
     Indication: Hodgkin^s disease
     Dosage: 375 MG/M2, ON DAYS 1 AND 15 FOR A 28 DAY CYCLE
     Route: 042
  4. VINBLASTINE [Suspect]
     Active Substance: VINBLASTINE
     Indication: Hodgkin^s disease
     Dosage: 6 MG/M2, ON DAYS 1 AND 15 FOR A 28 DAY CYCLE
     Dates: start: 20180921
  5. ASPIRIN [Concomitant]
     Active Substance: ASPIRIN
     Dosage: 1 DF
     Route: 048
  6. ATORVASTATIN [Concomitant]
     Active Substance: ATORVASTATIN
     Dosage: 1 DF, AT BEDTIME
     Route: 048
  7. ATRIPLA [Concomitant]
     Active Substance: EFAVIRENZ\EMTRICITABINE\TENOFOVIR DISOPROXIL FUMARATE
     Dosage: 1 DF, QD
     Route: 048
  8. BIKTARVY [Concomitant]
     Active Substance: BICTEGRAVIR SODIUM\EMTRICITABINE\TENOFOVIR ALAFENAMIDE FUMARATE
     Dosage: 1 DF, QD
     Route: 048
  9. BUSPIRONE [Concomitant]
     Active Substance: BUSPIRONE HYDROCHLORIDE
     Dosage: 1 DF, BID
     Route: 048
  10. CLONAZEPAM [Concomitant]
     Active Substance: CLONAZEPAM
     Dosage: 1 DF, BID PRN FOR 30 DAYS
     Route: 048
  11. CLOPIDOGREL [Concomitant]
     Active Substance: CLOPIDOGREL BISULFATE
     Dosage: 1 DF, QD
     Route: 048
  12. PROCHLORPERAZINE EDISYLATE [Concomitant]
     Active Substance: PROCHLORPERAZINE EDISYLATE
     Indication: Nausea
     Dosage: 1 DF, Q6HR PRN
     Route: 048
  13. DEXAMETHASONE [Concomitant]
     Active Substance: DEXAMETHASONE
     Dosage: 2 DF, BID, DAY 2, 3 + 4 AND DAYS 16, 17 + 18 OF EACH CHEMOTHERAPY CYCLE
     Route: 048
  14. DILTIAZEM [Concomitant]
     Active Substance: DILTIAZEM
     Dosage: 1 DF, QD
     Route: 048
  15. ALBUTEROL\IPRATROPIUM [Concomitant]
     Active Substance: ALBUTEROL\IPRATROPIUM
     Dosage: 1 VIAL, 1-2 TIMES, QD
  16. LIDOCAINE\PRILOCAINE [Concomitant]
     Active Substance: LIDOCAINE\PRILOCAINE
     Dosage: APPLY TO PORT SITE AND COVER 30-45 MINUTES PRIOR TO NEEDLE ACCESS
  17. ALUMINUM HYDROXIDE\DIMETHICONE\MAGNESIUM HYDROXIDE [Concomitant]
     Active Substance: ALUMINUM HYDROXIDE\DIMETHICONE\MAGNESIUM HYDROXIDE
     Dosage: MIX WITH VISCOUS LIDOCAINE AND BENADRYL, 5-10 MILS SWISH AND SWALLOW BEFORE MEALS AND BEDTIME
  18. NITROSTAT [Concomitant]
     Active Substance: NITROGLYCERIN
     Dosage: 1 DF, PRN
     Route: 060
  19. ONDANSETRON [Concomitant]
     Active Substance: ONDANSETRON
     Dosage: 1 DF, Q8HR BY TRANSLINUAL ROUTE FOR 30 DAYS
  20. OXYCODONE AND ACETAMINOPHEN [Concomitant]
     Active Substance: ACETAMINOPHEN\OXYCODONE HYDROCHLORIDE
     Dosage: FROM SURGERY USING PRN/OXYCODONE HYDROCHLORIDE:5MG PARACETAMOL:325MG
  21. PANTOPRAZOLE [Concomitant]
     Active Substance: PANTOPRAZOLE
  22. PREDNISONE [Concomitant]
     Active Substance: PREDNISONE
     Dosage: 1 DF, QD FOR 90 DAYS
     Route: 048
  23. LIDOCAINE VISCOUS [Concomitant]
     Active Substance: LIDOCAINE HYDROCHLORIDE
     Dosage: MIX WITH MAALOX AND BENADRYL, 5-10 MILS SWISH AND SWALLOW BEFORE MEALS AND BEDTIME
  24. BENADRYL [Concomitant]
     Active Substance: DIPHENHYDRAMINE HYDROCHLORIDE
     Dosage: MIX WITH MAALOX AND VISCOUS LIDOCAINE, 5-10 MILS SWISH AND SWALLOW BEFORE MEALS AND BEDTIME

REACTIONS (22)
  - Septic shock [Unknown]
  - Pneumonia [Unknown]
  - Febrile neutropenia [Unknown]
  - Acute respiratory failure [Unknown]
  - Acute kidney injury [Unknown]
  - Acute hepatic failure [Unknown]
  - Malnutrition [Unknown]
  - Dyspnoea [Unknown]
  - Staphylococcal infection [Unknown]
  - Coma [Unknown]
  - Cholecystitis [Unknown]
  - Hypotension [Unknown]
  - Malaise [Unknown]
  - Fatigue [Unknown]
  - Decreased appetite [Unknown]
  - Pyrexia [Unknown]
  - Chills [Unknown]
  - Blood bilirubin increased [Unknown]
  - Hepatic enzyme increased [Unknown]
  - Blood alkaline phosphatase increased [Unknown]
  - Pleural effusion [Unknown]
  - Neoplasm progression [Unknown]

NARRATIVE: CASE EVENT DATE: 20180101
